FAERS Safety Report 7157221-7 (Version None)
Quarter: 2010Q4

REPORT INFORMATION
  Report Type: 
  Country: None (occurrence: None)
  Receive Date: 20101214
  Receipt Date: 20100203
  Transmission Date: 20110411
  Serious: No
  Sender: FDA-Public Use
  Company Number: US-ASTRAZENECA-2009SE31677

PATIENT
  Age: 86 Year
  Sex: Female
  Weight: 54.4 kg

DRUGS (4)
  1. CRESTOR [Suspect]
     Indication: BLOOD CHOLESTEROL INCREASED
     Route: 048
     Dates: start: 20091204
  2. LAMICTAL [Suspect]
     Route: 065
  3. SYNTHROID [Concomitant]
  4. VITAMINS [Concomitant]

REACTIONS (1)
  - DIARRHOEA [None]
